FAERS Safety Report 4582116-2 (Version None)
Quarter: 2005Q1

REPORT INFORMATION
  Report Type: 
  Country: None (occurrence: None)
  Receive Date: 20050119
  Receipt Date: 20040105
  Transmission Date: 20050727
  Serious: Yes (Other)
  Sender: FDA-Public Use
  Company Number: A03200400028

PATIENT
  Age: 42 Year
  Sex: Female
  Weight: 78.9259 kg

DRUGS (17)
  1. PLAVIX [Suspect]
     Indication: CHEST PAIN
     Dosage: 75 MG QD - ORAL
     Route: 048
     Dates: start: 20020301, end: 20020101
  2. ACETYLSALICYLIC ACID SRT [Concomitant]
  3. LOSARTAN POTASSIUM [Concomitant]
  4. ESTRADIOL [Concomitant]
  5. LANSOPRAZOLE [Concomitant]
  6. FUROSEMIDE [Concomitant]
  7. CHLORDIAZEPOXIDE HYDROCHLORIDE + CLIDINIUM BROMIDE [Concomitant]
  8. GABAPENTIN [Concomitant]
  9. CARISOPRODOL [Concomitant]
  10. SIMVASTATIN [Concomitant]
  11. ALENDRONATE SODIUM [Concomitant]
  12. FLUTICASONE + SALMETEROL [Concomitant]
  13. ALBUTEROL [Concomitant]
  14. IPRATROPIUM BROMIDE [Concomitant]
  15. CALCIUM CARBONATE + VITAMIN D [Concomitant]
  16. ISOSORBIDE MONONITRATE [Concomitant]
  17. NITROGLYCERIN [Concomitant]

REACTIONS (2)
  - RECTAL HAEMORRHAGE [None]
  - URINARY BLADDER HAEMORRHAGE [None]
